FAERS Safety Report 5527359-6 (Version None)
Quarter: 2007Q4

REPORT INFORMATION
  Report Type: 
  Country: None (occurrence: None)
  Receive Date: 20071121
  Receipt Date: 20071109
  Transmission Date: 20080405
  Serious: Yes (Hospitalization)
  Sender: FDA-Public Use
  Company Number: B0496057A

PATIENT
  Age: 65 Year
  Sex: Female

DRUGS (2)
  1. IMITREX [Suspect]
     Dosage: ORAL
     Route: 048
  2. VENLAFAXINE HCL [Suspect]

REACTIONS (3)
  - CONVULSION [None]
  - DRUG INTERACTION [None]
  - SEROTONIN SYNDROME [None]
